FAERS Safety Report 20573430 (Version 1)
Quarter: 2022Q1

REPORT INFORMATION
  Report Type: Spontaneous
  Country: SE (occurrence: SE)
  Receive Date: 20220309
  Receipt Date: 20220309
  Transmission Date: 20220423
  Serious: Yes (Other)
  Sender: FDA-Public Use
  Company Number: SE-LABORATORIOS LICONSA S.A.-2202SE00610

PATIENT
  Age: 66 Year
  Sex: Male

DRUGS (1)
  1. ATORVASTATIN CALCIUM [Suspect]
     Active Substance: ATORVASTATIN CALCIUM
     Indication: Myocardial ischaemia
     Dosage: 80 MG
     Dates: start: 2018

REACTIONS (1)
  - Immune-mediated myositis [Unknown]
